FAERS Safety Report 4286180-X (Version None)
Quarter: 2004Q1

REPORT INFORMATION
  Report Type: 
  Country: None (occurrence: None)
  Receive Date: 20040203
  Receipt Date: 20040121
  Transmission Date: 20041129
  Serious: Yes (Other)
  Sender: FDA-Public Use
  Company Number: 2004004679

PATIENT
  Sex: Male

DRUGS (2)
  1. NEURONTIN [Suspect]
     Indication: RADICULAR SYNDROME
     Dosage: 1200 MG (TID), ORAL
     Route: 048
  2. VALORON N (NALOXONE HYDROCHLORIDE, TILIDINE HYDROCHLORIDE) [Concomitant]

REACTIONS (5)
  - DEPENDENCE [None]
  - DRUG WITHDRAWAL SYNDROME [None]
  - FEELING COLD [None]
  - PAIN [None]
  - TREMOR [None]
